FAERS Safety Report 7326763-3 (Version None)
Quarter: 2011Q1

REPORT INFORMATION
  Report Type: 
  Country: None (occurrence: None)
  Receive Date: 20110302
  Receipt Date: 20091120
  Transmission Date: 20110831
  Serious: Yes (Hospitalization, Other)
  Sender: FDA-Public Use
  Company Number: US-BAYER-200940961NA

PATIENT
  Sex: Male
  Weight: 86 kg

DRUGS (15)
  1. GLYBURIDE [Concomitant]
     Indication: PRODUCT USED FOR UNKNOWN INDICATION
     Dosage: 5 MG, BID
     Route: 048
     Dates: start: 20040101, end: 20051005
  2. LASIX [Concomitant]
     Indication: PRODUCT USED FOR UNKNOWN INDICATION
     Dosage: 40 MG, PRN
     Route: 048
     Dates: start: 20030101
  3. LEVOPHED [Concomitant]
     Indication: PRODUCT USED FOR UNKNOWN INDICATION
     Dosage: 160 MCG WEAN
     Route: 042
     Dates: start: 20051005, end: 20051006
  4. TRASYLOL [Suspect]
     Indication: CORONARY ARTERY BYPASS
     Dosage: UNK
     Route: 042
     Dates: start: 20051005, end: 20051005
  5. TRASYLOL [Suspect]
     Indication: MITRAL VALVE REPAIR
  6. NORVASC [Concomitant]
     Indication: PRODUCT USED FOR UNKNOWN INDICATION
     Dosage: 10 MG, QD
     Route: 048
     Dates: start: 20050825, end: 20051005
  7. METOPROLOL [Concomitant]
     Indication: PRODUCT USED FOR UNKNOWN INDICATION
     Dosage: 25 MG, BID
     Route: 048
     Dates: start: 20040101, end: 20051005
  8. HEPARIN [Concomitant]
     Indication: PRODUCT USED FOR UNKNOWN INDICATION
     Dosage: 50 KU
     Route: 042
     Dates: start: 20051005
  9. INSULIN [Concomitant]
     Dosage: UNK
     Route: 041
     Dates: start: 20050927, end: 20051008
  10. CRESTOR [Concomitant]
     Indication: PRODUCT USED FOR UNKNOWN INDICATION
     Dosage: 10 MG, QD
     Route: 048
     Dates: start: 20040101, end: 20051005
  11. MANNITOL [Concomitant]
     Indication: PRODUCT USED FOR UNKNOWN INDICATION
     Dosage: 250 ML 50 G
     Route: 042
     Dates: start: 20051005, end: 20051005
  12. TRASYLOL [Suspect]
     Indication: AORTIC VALVE REPLACEMENT
  13. RED BLOOD CELLS [Concomitant]
     Indication: PRODUCT USED FOR UNKNOWN INDICATION
     Dosage: 1 U, UNK
  14. LANTUS [Concomitant]
     Indication: PRODUCT USED FOR UNKNOWN INDICATION
     Dosage: 25 MG, HS
     Route: 058
     Dates: start: 20040101, end: 20051005
  15. DRISDOL [Concomitant]
     Indication: PRODUCT USED FOR UNKNOWN INDICATION
     Dosage: 50000 U, Q1MON
     Route: 048
     Dates: start: 20050825, end: 20051005

REACTIONS (12)
  - RENAL INJURY [None]
  - ANXIETY [None]
  - RENAL FAILURE [None]
  - ANHEDONIA [None]
  - EMOTIONAL DISTRESS [None]
  - FEAR [None]
  - INJURY [None]
  - DEPRESSION [None]
  - DISABILITY [None]
  - MULTI-ORGAN FAILURE [None]
  - PAIN [None]
  - UNEVALUABLE EVENT [None]
